FAERS Safety Report 6193403-9 (Version None)
Quarter: 2009Q2

REPORT INFORMATION
  Report Type: 
  Country: None (occurrence: None)
  Receive Date: 20090518
  Receipt Date: 20080429
  Transmission Date: 20091009
  Serious: No
  Sender: FDA-Public Use
  Company Number: US-ABBOTT-08P-163-0449926-00

PATIENT
  Sex: Female
  Weight: 66.738 kg

DRUGS (7)
  1. AZMACORT [Suspect]
     Indication: ASTHMA PROPHYLAXIS
     Route: 055
     Dates: start: 19820101, end: 20080201
  2. BUDESONIDE [Concomitant]
     Indication: ASTHMA
     Route: 055
     Dates: start: 20080301
  3. THEOPHYLLINE [Concomitant]
     Indication: ASTHMA
     Route: 048
  4. BISOPROLOL FUMARATE [Concomitant]
     Indication: HYPERTENSION
     Route: 048
  5. ROSUVASTATIN CALCIUM [Concomitant]
     Indication: BLOOD CHOLESTEROL INCREASED
     Route: 048
  6. UBIDECARENONE [Concomitant]
     Indication: VITAMIN SUPPLEMENTATION
     Route: 048
  7. ALENDRONATE SODIUM [Concomitant]
     Indication: OSTEOPOROSIS
     Route: 048

REACTIONS (2)
  - DYSPNOEA [None]
  - UNDERDOSE [None]
